FAERS Safety Report 10088948 (Version 1)
Quarter: 2014Q2

REPORT INFORMATION
  Report Type: Spontaneous
  Country: US (occurrence: US)
  Receive Date: 20140421
  Receipt Date: 20140421
  Transmission Date: 20141212
  Serious: Yes (Hospitalization)
  Sender: FDA-Public Use
  Company Number: US-DRREDDYS-USA/USA/14/0038195

PATIENT
  Age: 24 Year
  Sex: Male

DRUGS (1)
  1. ISOTRETINOIN NOT OTHERWISE SPECIFIED [Suspect]
     Indication: ACNE
     Route: 065

REACTIONS (1)
  - Colitis ulcerative [Recovering/Resolving]
